FAERS Safety Report 11068505 (Version 2)
Quarter: 2015Q2

REPORT INFORMATION
  Report Type: Spontaneous
  Country: IT (occurrence: IT)
  Receive Date: 20150427
  Receipt Date: 20150507
  Transmission Date: 20150821
  Serious: Yes (Hospitalization)
  Sender: FDA-Public Use
  Company Number: IT-JNJFOC-20150413422

PATIENT
  Age: 29 Year
  Sex: Female

DRUGS (8)
  1. DAKTARIN 2% [Suspect]
     Active Substance: MICONAZOLE NITRATE
     Indication: ORAL CANDIDIASIS
     Route: 065
     Dates: start: 20130829, end: 20130905
  2. LEPONEX [Interacting]
     Active Substance: CLOZAPINE
     Indication: PSYCHOTIC DISORDER
     Route: 048
     Dates: start: 20130904
  3. DAKTARIN 2% [Suspect]
     Active Substance: MICONAZOLE NITRATE
     Route: 065
  4. YASMIN [Interacting]
     Active Substance: DROSPIRENONE\ETHINYL ESTRADIOL
     Indication: OVARIAN CYST
     Dosage: 3 MG
     Route: 048
     Dates: start: 20130807, end: 20130925
  5. LEPONEX [Interacting]
     Active Substance: CLOZAPINE
     Indication: PSYCHOTIC DISORDER
     Route: 048
     Dates: start: 20130919, end: 20131003
  6. EN [Concomitant]
     Active Substance: DELORAZEPAM
     Indication: PRODUCT USED FOR UNKNOWN INDICATION
     Route: 042
     Dates: start: 20130909, end: 20131009
  7. TAVOR [Concomitant]
     Active Substance: LORAZEPAM
     Indication: PRODUCT USED FOR UNKNOWN INDICATION
     Dosage: EQUIVALENT TO 10 MG/DAY
     Route: 048
     Dates: start: 20130909, end: 20131009
  8. DIFLUCAN [Interacting]
     Active Substance: FLUCONAZOLE
     Indication: OESOPHAGEAL CANDIDIASIS
     Route: 048
     Dates: start: 20130829, end: 20130904

REACTIONS (3)
  - Drug interaction [Unknown]
  - Pericarditis [Recovered/Resolved]
  - Drug effect increased [Recovered/Resolved]

NARRATIVE: CASE EVENT DATE: 20130924
